FAERS Safety Report 6187642-0 (Version None)
Quarter: 2009Q2

REPORT INFORMATION
  Report Type: 
  Country: None (occurrence: None)
  Receive Date: 20090511
  Receipt Date: 20090424
  Transmission Date: 20091009
  Serious: Yes (Other)
  Sender: FDA-Public Use
  Company Number: SPV1-2009-00809

PATIENT
  Age: 33 Year
  Sex: Male
  Weight: 77.1 kg

DRUGS (2)
  1. ADDERALL 10 [Suspect]
     Dates: start: 20070601
  2. ADDERALL 10 [Concomitant]
     Dates: start: 20070101

REACTIONS (16)
  - AGGRESSION [None]
  - AGITATION [None]
  - ANGER [None]
  - DECREASED INTEREST [None]
  - DELUSIONAL DISORDER, PERSECUTORY TYPE [None]
  - DEPRESSED MOOD [None]
  - DISTURBANCE IN ATTENTION [None]
  - DISTURBANCE IN SOCIAL BEHAVIOUR [None]
  - DRUG ABUSE [None]
  - HALLUCINATION, AUDITORY [None]
  - IMPULSIVE BEHAVIOUR [None]
  - LOSS OF EMPLOYMENT [None]
  - MANIA [None]
  - PARTNER STRESS [None]
  - THEFT [None]
  - WEIGHT DECREASED [None]
